FAERS Safety Report 6836232-2 (Version None)
Quarter: 2010Q3

REPORT INFORMATION
  Report Type: 
  Country: None (occurrence: None)
  Receive Date: 20100712
  Receipt Date: 20100712
  Transmission Date: 20110219
  Serious: Yes (Death, Hospitalization)
  Sender: FDA-Public Use
  Company Number: None

PATIENT
  Sex: Male
  Weight: 126 kg

DRUGS (3)
  1. CYTARABINE [Suspect]
     Dosage: 34000 MG
  2. DAUNORUBICIN HCL [Suspect]
     Dosage: 500 MG
  3. ETOPOSIDE [Suspect]
     Dosage: 4380 MG

REACTIONS (7)
  - CARDIO-RESPIRATORY ARREST [None]
  - HEADACHE [None]
  - HYPOTENSION [None]
  - LEUKAEMIA RECURRENT [None]
  - PAIN IN JAW [None]
  - PYREXIA [None]
  - RESPIRATORY FAILURE [None]
